FAERS Safety Report 4520572-6 (Version None)
Quarter: 2004Q4

REPORT INFORMATION
  Report Type: 
  Country: None (occurrence: None)
  Receive Date: 20041203
  Receipt Date: 20041122
  Transmission Date: 20050328
  Serious: Yes (Other)
  Sender: FDA-Public Use
  Company Number: 2004097102

PATIENT
  Age: 65 Year
  Sex: Male
  Weight: 83.9154 kg

DRUGS (7)
  1. BEXTRA [Suspect]
     Indication: ARTHRITIS
     Dosage: 10 MG (10 MG, 1 IN 1 D), ORAL
     Route: 048
     Dates: start: 20040101, end: 20041101
  2. ACETAMINOPHEN [Concomitant]
  3. VALSARTAN (VALSARTAN) [Concomitant]
  4. ALLEREST (CHLORPHENAMINE MALEATE, METHAPYRILENE FUMARATE, PHENYLPROPAN [Concomitant]
  5. LANSOPRAZOLE [Concomitant]
  6. ACETYLSALCYLIC ACID (ACETYLSALICYLIC ACID) [Concomitant]
  7. CENTRUM SILVER (ASCORBIC ACID, CALCIUM, MINERALS NOS, RETINOL, TOCOPHE [Concomitant]

REACTIONS (5)
  - DYSPEPSIA [None]
  - DYSPHAGIA [None]
  - ERUCTATION [None]
  - FLATULENCE [None]
  - STOMACH DISCOMFORT [None]
